FAERS Safety Report 8199480-8 (Version None)
Quarter: 2012Q1

REPORT INFORMATION
  Report Type: 
  Country: None (occurrence: None)
  Receive Date: 20120309
  Receipt Date: 20120305
  Transmission Date: 20120608
  Serious: Yes (Other)
  Sender: FDA-Public Use
  Company Number: US-ABBOTT-12P-163-0912378-00

PATIENT
  Sex: Female

DRUGS (5)
  1. HUMIRA [Suspect]
     Indication: SCLERITIS
     Route: 058
     Dates: start: 20111201
  2. LISINOPRIL [Concomitant]
     Indication: HYPERTENSION
     Dosage: DECREASED DOSE UNTIL SURGERY
  3. METHOTREXATE [Concomitant]
     Indication: SCLERITIS
     Dosage: DECREASED DOSE UNTIL SURGERY
  4. SYNTHROID [Concomitant]
     Indication: HYPOTHYROIDISM
  5. PREDNISONE [Concomitant]
     Indication: SCLERITIS
     Dosage: DECREASED DOSE UNTIL SURGERY

REACTIONS (2)
  - OVARIAN NEOPLASM [None]
  - OFF LABEL USE [None]
